FAERS Safety Report 6713459-1 (Version None)
Quarter: 2010Q2

REPORT INFORMATION
  Report Type: 
  Country: None (occurrence: None)
  Receive Date: 20100504
  Receipt Date: 20090902
  Transmission Date: 20101027
  Serious: Yes (Other)
  Sender: FDA-Public Use
  Company Number: LEO-2010-00347

PATIENT
  Sex: Female

DRUGS (7)
  1. INNOHEP [Suspect]
     Indication: DEEP VEIN THROMBOSIS
     Dosage: 4500 IU (4500 IU, I 1IN 1 D), SUBCUTANEOUS
     Route: 058
     Dates: start: 20050121, end: 20050724
  2. INNOHEP [Suspect]
     Indication: THROMBOSIS PROPHYLAXIS
     Dosage: 4500 IU (4500 IU, I 1IN 1 D), SUBCUTANEOUS
     Route: 058
     Dates: start: 20050121, end: 20050724
  3. ASPIRIN [Concomitant]
  4. FOLIC ACID [Concomitant]
  5. MIFEPRISTONE (MIFEPRISTONE) [Concomitant]
  6. MORPHINE SULFATE [Concomitant]
  7. CYCLIZINE (CYCLIZINE) [Concomitant]

REACTIONS (4)
  - DRUG EXPOSURE DURING PREGNANCY [None]
  - HAEMORRHAGE [None]
  - RUBIVIRUS TEST POSITIVE [None]
  - STILLBIRTH [None]
